FAERS Safety Report 23592179 (Version 1)
Quarter: 2024Q1

REPORT INFORMATION
  Report Type: Spontaneous
  Country: US (occurrence: None)
  Receive Date: 20240301
  Receipt Date: 20240301
  Transmission Date: 20240409
  Serious: Yes (Other)
  Sender: FDA-Public Use
  Company Number: None

PATIENT
  Age: 51 Year
  Sex: Female

DRUGS (1)
  1. BUPROPION [Suspect]
     Active Substance: BUPROPION
     Dosage: FREQUENCY : DAILY;?
     Route: 048
     Dates: start: 20160101, end: 20160201

REACTIONS (3)
  - Feeling jittery [None]
  - Lethargy [None]
  - Brain fog [None]

NARRATIVE: CASE EVENT DATE: 20160201
